FAERS Safety Report 17186745 (Version 1)
Quarter: 2019Q4

REPORT INFORMATION
  Report Type: Spontaneous
  Country: US (occurrence: US)
  Receive Date: 20191220
  Receipt Date: 20191220
  Transmission Date: 20200122
  Serious: No
  Sender: FDA-Public Use
  Company Number: US-TEVA-2019-US-1154821

PATIENT
  Sex: Female

DRUGS (1)
  1. CLONAZEPAM. [Suspect]
     Active Substance: CLONAZEPAM
     Dosage: AT NIGHT AS NEEDED AT BEDTIME
     Route: 065

REACTIONS (4)
  - Insomnia [Unknown]
  - Tinnitus [Unknown]
  - Hypoacusis [Unknown]
  - Head discomfort [Unknown]
